FAERS Safety Report 6616038-X (Version None)
Quarter: 2010Q1

REPORT INFORMATION
  Report Type: 
  Country: None (occurrence: None)
  Receive Date: 20100305
  Receipt Date: 20100224
  Transmission Date: 20100710
  Serious: Yes (Hospitalization)
  Sender: FDA-Public Use
  Company Number: B0637308A

PATIENT
  Sex: Male
  Weight: 79 kg

DRUGS (5)
  1. LAPATINIB [Suspect]
     Indication: GLIOMA
     Dosage: 1250MG PER DAY
     Route: 048
     Dates: start: 20100111
  2. TEMODAL [Suspect]
     Indication: GLIOMA
     Dosage: 370MG PER DAY
     Route: 048
     Dates: start: 20100111
  3. ACTRAPID [Concomitant]
     Indication: DIABETES MELLITUS
     Dosage: 14IU UNKNOWN
     Route: 058
  4. MEDROL [Concomitant]
     Indication: BRAIN NEOPLASM
     Dosage: 16MG TWICE PER DAY
     Route: 048
     Dates: start: 20100115
  5. KYTRIL [Concomitant]
     Indication: VOMITING
     Dosage: 1.12MG PER DAY
     Route: 048
     Dates: start: 20100111, end: 20100115

REACTIONS (3)
  - LEUKOPENIA [None]
  - NEUTROPENIA [None]
  - THROMBOCYTOPENIA [None]
